FAERS Safety Report 20083513 (Version 1)
Quarter: 2021Q4

REPORT INFORMATION
  Report Type: Spontaneous
  Country: ES (occurrence: ES)
  Receive Date: 20211118
  Receipt Date: 20211118
  Transmission Date: 20220303
  Serious: Yes (Hospitalization, Other)
  Sender: FDA-Public Use
  Company Number: ES-AEMPS-1039513

PATIENT
  Age: 59 Year
  Sex: Male

DRUGS (4)
  1. IBUPROFEN [Suspect]
     Active Substance: IBUPROFEN
     Indication: Pain
     Dosage: 600 MILLIGRAM, FOUR TIMES/DAY (1-1-1-1 )
     Route: 048
     Dates: start: 20200709, end: 20200715
  2. NAPROXEN SODIUM [Suspect]
     Active Substance: NAPROXEN SODIUM
     Indication: Pain
     Dosage: 500 MILLIGRAM, TWO TIMES A DAY (1-0-1)
     Route: 048
     Dates: start: 20200709, end: 20200715
  3. ACETAMINOPHEN [Suspect]
     Active Substance: ACETAMINOPHEN
     Indication: Product used for unknown indication
     Dosage: 1 GRAM, 3 TIMES A DAY (1-1-1)
     Route: 048
     Dates: start: 20200709, end: 20200715
  4. METAMIZOL [Concomitant]
     Active Substance: METAMIZOLE SODIUM
     Indication: Pain
     Dosage: 575 MILLIGRAM, 3 TIMES A DAY (1-1-1)
     Route: 048
     Dates: start: 20200709, end: 20200715

REACTIONS (2)
  - Deafness neurosensory [Recovering/Resolving]
  - Vestibular disorder [Not Recovered/Not Resolved]

NARRATIVE: CASE EVENT DATE: 20200813
